FAERS Safety Report 5460547-6 (Version None)
Quarter: 2007Q3

REPORT INFORMATION
  Report Type: 
  Country: None (occurrence: None)
  Receive Date: 20070919
  Receipt Date: 20070910
  Transmission Date: 20080115
  Serious: Yes (Hospitalization, Disabling, Other)
  Sender: FDA-Public Use
  Company Number: US-PFIZER INC-2005118106

PATIENT
  Sex: Female
  Weight: 77.1 kg

DRUGS (5)
  1. NARDIL [Suspect]
     Indication: PANIC ATTACK
     Route: 048
  2. NARDIL [Interacting]
     Indication: AGORAPHOBIA
     Route: 048
  3. NARDIL [Interacting]
     Indication: PANIC DISORDER
  4. SYNTHROID [Interacting]
     Indication: THYROID DISORDER
     Route: 065
  5. CENTRUM [Concomitant]
     Route: 065

REACTIONS (21)
  - ACTIVITIES OF DAILY LIVING IMPAIRED [None]
  - BACK PAIN [None]
  - BLOOD GLUCOSE DECREASED [None]
  - BLOOD PRESSURE INCREASED [None]
  - BONE DISORDER [None]
  - CHOLELITHIASIS [None]
  - CONVULSION [None]
  - CRYING [None]
  - DISABILITY [None]
  - DIZZINESS [None]
  - DRUG INEFFECTIVE [None]
  - DRUG INTERACTION [None]
  - DRUG TOXICITY [None]
  - FEELING ABNORMAL [None]
  - GAIT DISTURBANCE [None]
  - MALAISE [None]
  - MUSCLE DISORDER [None]
  - NERVOUSNESS [None]
  - PANIC DISORDER WITH AGORAPHOBIA [None]
  - THYROID DISORDER [None]
  - TONIC CLONIC MOVEMENTS [None]
